APPROVED DRUG PRODUCT: LIDOCAINE
Active Ingredient: LIDOCAINE
Strength: 5%
Dosage Form/Route: OINTMENT;TOPICAL
Application: A086724 | Product #001 | TE Code: AT
Applicant: SUN PHARMA CANADA INC
Approved: Approved Prior to Jan 1, 1982 | RLD: No | RS: No | Type: RX